FAERS Safety Report 5583973-3 (Version None)
Quarter: 2008Q1

REPORT INFORMATION
  Report Type: 
  Country: None (occurrence: None)
  Receive Date: 20080108
  Receipt Date: 20080103
  Transmission Date: 20080703
  Serious: Yes (Other)
  Sender: FDA-Public Use
  Company Number: GB-ALLERGAN-0707300US

PATIENT
  Sex: Female

DRUGS (14)
  1. OCUFEN [Suspect]
     Indication: PREOPERATIVE CARE
     Dosage: UNK, UNK
     Route: 047
     Dates: start: 20070605, end: 20070605
  2. OCUFEN [Suspect]
     Dosage: UNK, UNK
  3. OCUFEN [Suspect]
  4. CHLORAMPHENICOL 0.5% SOL [Suspect]
     Indication: CATARACT OPERATION
     Dosage: 1 DF, UNK
     Route: 047
     Dates: start: 20070605, end: 20070605
  5. CYCLOPENTOLATE HCL [Suspect]
     Indication: CATARACT OPERATION
     Dosage: 1 DF, UNK
     Route: 047
     Dates: start: 20070605, end: 20070605
  6. PHENYLEPHRINE [Suspect]
     Indication: CATARACT OPERATION
     Dosage: 1 DF, UNK
     Route: 047
     Dates: start: 20070605, end: 20070605
  7. LIDOCAINE [Suspect]
     Indication: CATARACT OPERATION
     Dosage: 2 ML, UNK
     Route: 047
     Dates: start: 20070605, end: 20070605
  8. POVIDONE IODINE [Suspect]
     Indication: CATARACT OPERATION
     Dosage: UNK, UNK
     Route: 047
     Dates: start: 20070605, end: 20070605
  9. BALANCED SALT SOLUTION [Suspect]
     Indication: PREOPERATIVE CARE
     Dates: start: 20070605
  10. HYALURONIDASE [Suspect]
     Indication: CATARACT OPERATION
     Dosage: UNK, UNK
     Route: 047
     Dates: start: 20070605, end: 20070605
  11. BETAMETHASONE [Suspect]
     Indication: CATARACT OPERATION
     Route: 047
     Dates: start: 20070605, end: 20070605
  12. NEOMYCIN [Suspect]
     Indication: POSTOPERATIVE CARE
     Route: 047
     Dates: start: 20070605, end: 20070605
  13. ADRENALINE [Suspect]
     Indication: CATARACT OPERATION
     Dosage: 0.3 ML, UNK
     Route: 047
     Dates: start: 20070605, end: 20070605
  14. VANCOMYCIN [Suspect]
     Indication: CATARACT OPERATION
     Dosage: 10 MG, UNK
     Route: 047
     Dates: start: 20070605, end: 20070605

REACTIONS (1)
  - TOXIC ANTERIOR SEGMENT SYNDROME [None]
